FAERS Safety Report 5988483-7 (Version None)
Quarter: 2008Q4

REPORT INFORMATION
  Report Type: 
  Country: None (occurrence: None)
  Receive Date: 20081208
  Receipt Date: 20081208
  Transmission Date: 20090506
  Serious: Yes (Life-Threatening, Hospitalization)
  Sender: FDA-Public Use
  Company Number: None

PATIENT
  Age: 52 Year
  Sex: Female
  Weight: 115.2136 kg

DRUGS (1)
  1. VOLTAREN [Suspect]
     Indication: OSTEOARTHRITIS
     Dosage: 2GRAMS 4 TIMES/DAY TOP
     Route: 061
     Dates: start: 20081111, end: 20081112

REACTIONS (2)
  - CHEST PAIN [None]
  - HYPERTENSIVE CRISIS [None]
